FAERS Safety Report 4282036-7 (Version None)
Quarter: 2004Q1

REPORT INFORMATION
  Report Type: 
  Country: None (occurrence: None)
  Receive Date: 20040128
  Receipt Date: 20040116
  Transmission Date: 20041129
  Serious: Yes (Life-Threatening, Hospitalization)
  Sender: FDA-Public Use
  Company Number: 22836

PATIENT
  Age: 34 Year
  Sex: Male

DRUGS (2)
  1. ALDARA [Suspect]
     Indication: SKIN PAPILLOMA
     Dosage: TOPICAL
     Route: 061
     Dates: start: 20031001
  2. HEXTRIL (HEXETIDINE) [Suspect]
     Dosage: BU
     Route: 002

REACTIONS (5)
  - GINGIVAL BLEEDING [None]
  - HEADACHE [None]
  - LYMPHOPENIA [None]
  - PURPURA [None]
  - THROMBOCYTOPENIA [None]
